FAERS Safety Report 19484309 (Version 1)
Quarter: 2021Q3

REPORT INFORMATION
  Report Type: Spontaneous
  Country: GB (occurrence: GB)
  Receive Date: 20210702
  Receipt Date: 20210702
  Transmission Date: 20211014
  Serious: Yes (Death, Other)
  Sender: FDA-Public Use
  Company Number: GB-SA-2021SA211660

PATIENT
  Age: 55 Year
  Sex: Female

DRUGS (41)
  1. TRASTUZUMAB. [Suspect]
     Active Substance: TRASTUZUMAB
     Indication: BREAST CANCER
     Dosage: 525 MG, LOADING DOSE (PHARMACEUTICAL DOSE FORM: 356)
     Route: 042
     Dates: start: 20170524, end: 20170524
  2. TRASTUZUMAB EMTANSINE [Suspect]
     Active Substance: ADO-TRASTUZUMAB EMTANSINE
     Indication: BREAST CANCER
     Dosage: 240 MG, EVERY 3 WEEKS  (PHARMACEUTICAL DOSE FORM: 230)
     Route: 042
     Dates: start: 20190427, end: 20190606
  3. AMITRIPTYLINE HYDROCHLORIDE. [Concomitant]
     Active Substance: AMITRIPTYLINE HYDROCHLORIDE
     Indication: DEPRESSED MOOD
     Dosage: 5 MG, 1X/DAY
     Route: 048
     Dates: start: 20190827
  4. AMOXICILLIN. [Concomitant]
     Active Substance: AMOXICILLIN
     Indication: PYREXIA
     Dosage: 3 MG
     Route: 065
  5. CARMELLOSE SODIUM [Concomitant]
     Active Substance: CARBOXYMETHYLCELLULOSE SODIUM
     Dosage: UNK, 4X/DAY
     Route: 060
     Dates: start: 20170526
  6. CETIRIZINE [Concomitant]
     Active Substance: CETIRIZINE HYDROCHLORIDE
     Dosage: 10 MG, 1X/DAY
     Route: 048
     Dates: start: 20190313
  7. CHLORPHENAMINE [Concomitant]
     Active Substance: CHLORPHENIRAMINE MALEATE
     Dosage: 4 MG FREQ:.25 D;
     Route: 048
     Dates: start: 20170526
  8. FUSIDIC ACID [Concomitant]
     Active Substance: FUSIDIC ACID
     Dosage: UNK
     Route: 065
     Dates: start: 201905
  9. TINZAPARIN [Concomitant]
     Active Substance: TINZAPARIN
     Dosage: 4500 IU, 1X/DAY
     Route: 058
     Dates: start: 20190918
  10. VANCOMYCIN [Concomitant]
     Active Substance: VANCOMYCIN
     Dosage: 500 MG
     Route: 048
     Dates: start: 20201104, end: 20201113
  11. METRONIDAZOLE. [Concomitant]
     Active Substance: METRONIDAZOLE
     Dosage: UNK
     Route: 065
     Dates: start: 20200909, end: 20200914
  12. DOCETAXEL. [Suspect]
     Active Substance: DOCETAXEL
     Indication: BREAST CANCER
     Dosage: 130 MG, EVERY 3 WEEKS
     Route: 042
     Dates: start: 20170525, end: 20170525
  13. TRASTUZUMAB. [Suspect]
     Active Substance: TRASTUZUMAB
     Dosage: 400 MG, EVERY 3 WEEKS  (PHARMACEUTICAL DOSE FORM: 356)
     Route: 042
     Dates: start: 20170614, end: 20180425
  14. CAPECITABINE. [Suspect]
     Active Substance: CAPECITABINE
     Indication: BREAST CANCER
     Dosage: 1300 MG (PHARMACEUTICAL DOSE FORM: 245)
     Route: 048
     Dates: start: 20201020
  15. PACLITAXEL. [Suspect]
     Active Substance: PACLITAXEL
     Dosage: 375 MG, EVERY 3 WEEKS  (PHARMACEUTICAL DOSE FORM: 231)
     Route: 042
     Dates: start: 20170705, end: 20170726
  16. APIXABAN [Concomitant]
     Active Substance: APIXABAN
     Dosage: FREQ: .5 D;
     Route: 048
     Dates: start: 20190819, end: 20190917
  17. METRONIDAZOLE. [Concomitant]
     Active Substance: METRONIDAZOLE
     Dosage: 400 MG, MONTHLY
     Route: 048
     Dates: start: 20201116, end: 202011
  18. TINZAPARIN [Concomitant]
     Active Substance: TINZAPARIN
     Dosage: UNK
     Route: 058
     Dates: start: 20170713
  19. CALCICHEW D3 FORTE [Concomitant]
     Active Substance: CALCIUM\CHOLECALCIFEROL
     Dosage: UNK UNK, 3X/DAY
     Route: 048
     Dates: start: 20170525
  20. CHLORHEXIDINE GLUCONATE. [Concomitant]
     Active Substance: CHLORHEXIDINE GLUCONATE
     Dosage: 40 ML; FREQ:.25 D;
     Route: 061
     Dates: start: 20170525
  21. CLOBETASOL PROPIONATE. [Concomitant]
     Active Substance: CLOBETASOL PROPIONATE
     Dosage: UNK UNK, 2X/DAY
     Route: 061
     Dates: start: 20170210
  22. LANSOPRAZOLE. [Concomitant]
     Active Substance: LANSOPRAZOLE
     Dosage: 30 MG, 1X/DAY
     Route: 048
     Dates: start: 20190730
  23. LOPERAMIDE [Concomitant]
     Active Substance: LOPERAMIDE
     Dosage: 2 MG, PRN (AS NEEDED)
     Route: 048
     Dates: start: 20170613
  24. PACLITAXEL. [Suspect]
     Active Substance: PACLITAXEL
     Indication: BREAST CANCER
     Dosage: 300 MG, EVERY 3 WEEKS (PHARMACEUTICAL DOSE FORM: 231)
     Route: 042
     Dates: start: 20170816, end: 20170906
  25. ZOLEDRONIC ACID [Concomitant]
     Active Substance: ZOLEDRONIC ACID
     Dosage: 4 MG, EVERY 3?4 WEEKS
     Route: 042
     Dates: start: 20170525
  26. PACLITAXEL. [Suspect]
     Active Substance: PACLITAXEL
     Dosage: 375 MG, EVERY 3 WEEKS (PHARMACEUTICAL DOSE FORM: 231)
     Route: 042
     Dates: start: 20170705, end: 20170726
  27. PERTUZUMAB. [Suspect]
     Active Substance: PERTUZUMAB
     Dosage: 840 MG, LOADING DOSE  (PHARMACEUTICAL DOSE FORM: 230)
     Route: 042
     Dates: start: 20170524, end: 20170524
  28. TINZAPARIN [Concomitant]
     Active Substance: TINZAPARIN
     Dosage: 12000 IU DAILY
     Route: 058
     Dates: start: 20170713
  29. VANCOMYCIN [Concomitant]
     Active Substance: VANCOMYCIN
     Dosage: 125 MG, 4X/DAY
     Route: 048
     Dates: start: 20201030
  30. TRASTUZUMAB. [Suspect]
     Active Substance: TRASTUZUMAB
     Dosage: 378 MG, EVERY 3 WEEKS  (PHARMACEUTICAL DOSE FORM: 356)
     Route: 042
     Dates: start: 20180516, end: 20190327
  31. AMOXICILLIN. [Concomitant]
     Active Substance: AMOXICILLIN
     Indication: ABDOMINAL PAIN
     Dosage: 625 MG, 3X/DAY
     Route: 048
     Dates: start: 20201211, end: 20201216
  32. APIXABAN [Concomitant]
     Active Substance: APIXABAN
     Dosage: 2.5 MG, 2X/DAY
     Route: 048
     Dates: start: 20190819, end: 20190917
  33. PARACETAMOL [Concomitant]
     Active Substance: ACETAMINOPHEN
     Dosage: 1 IU
     Route: 048
     Dates: start: 20170525
  34. PACLITAXEL. [Suspect]
     Active Substance: PACLITAXEL
     Dosage: 450 MG, EVERY 3 WEEKS (DOSE FORM: 231)
     Route: 042
     Dates: start: 20170614, end: 20170614
  35. PERTUZUMAB. [Suspect]
     Active Substance: PERTUZUMAB
     Indication: BREAST CANCER
     Dosage: 420 MG, EVERY 3 WEEKS  (PHARMACEUTICAL DOSE FORM: 230)
     Route: 042
     Dates: start: 20170614, end: 20190327
  36. TRASTUZUMAB EMTANSINE [Suspect]
     Active Substance: ADO-TRASTUZUMAB EMTANSINE
     Dosage: 200 MG, EVERY 3 WEEKS  (PHARMACEUTICAL DOSE FORM: 230)
     Route: 042
     Dates: start: 20190627
  37. CHLORHEXIDINE GLUCONATE. [Concomitant]
     Active Substance: CHLORHEXIDINE GLUCONATE
     Dosage: 10 ML FREQ:.25 D;
     Route: 061
     Dates: start: 20170525
  38. DOMPERIDONE [Concomitant]
     Active Substance: DOMPERIDONE
     Dosage: FREQ:.33 D;
     Route: 048
     Dates: start: 20170523
  39. DOMPERIDONE [Concomitant]
     Active Substance: DOMPERIDONE
     Dosage: 10 MG FREQ:.33 D;
     Route: 048
     Dates: start: 20170523
  40. IKERVIS [Concomitant]
     Active Substance: CYCLOSPORINE
     Dosage: UNK
     Route: 047
     Dates: start: 201708
  41. TRANEXAMIC ACID. [Concomitant]
     Active Substance: TRANEXAMIC ACID
     Dosage: UNK
     Route: 065
     Dates: start: 20190722

REACTIONS (4)
  - Device related infection [Fatal]
  - Disease progression [Fatal]
  - Tenosynovitis [Fatal]
  - Biliary sepsis [Fatal]

NARRATIVE: CASE EVENT DATE: 20190604
